FAERS Safety Report 8804663 (Version 2)
Quarter: 2012Q4

REPORT INFORMATION
  Report Type: 
  Country: US (occurrence: US)
  Receive Date: 20120924
  Receipt Date: 20121010
  Transmission Date: 20130627
  Serious: No
  Sender: FDA-Public Use
  Company Number: US-ROXANE LABORATORIES, INC.-2012-RO-01783RO

PATIENT
  Sex: Female

DRUGS (2)
  1. QUETIAPINE FUMARATE [Suspect]
     Indication: MIDDLE INSOMNIA
  2. QUETIAPINE FUMARATE [Suspect]
     Indication: BIPOLAR DISORDER

REACTIONS (6)
  - Drug ineffective for unapproved indication [Unknown]
  - Drug ineffective [Unknown]
  - Product substitution issue [Unknown]
  - Hypoaesthesia [Unknown]
  - Headache [Unknown]
  - Abdominal pain upper [Unknown]
